FAERS Safety Report 5640338-3 (Version None)
Quarter: 2008Q1

REPORT INFORMATION
  Report Type: 
  Country: None (occurrence: None)
  Receive Date: 20080227
  Receipt Date: 20080218
  Transmission Date: 20080703
  Serious: Yes (Death)
  Sender: FDA-Public Use
  Company Number: US-BAXTER-2008BH001454

PATIENT
  Age: 67 Year
  Sex: Male

DRUGS (1)
  1. HEPARIN SODIUM [Suspect]
     Indication: CORONARY ARTERY BYPASS
     Route: 042
     Dates: start: 20080208, end: 20080208

REACTIONS (3)
  - BLOOD PRESSURE DECREASED [None]
  - DEATH [None]
  - HAEMORRHAGE [None]
